FAERS Safety Report 9054975 (Version 2)
Quarter: 2013Q4

REPORT INFORMATION
  Report Type: Spontaneous
  Country: IT (occurrence: IT)
  Receive Date: 20130208
  Receipt Date: 20131212
  Transmission Date: 20140711
  Serious: Yes (Other)
  Sender: FDA-Public Use
  Company Number: IT-AMGEN-ITASP2013008672

PATIENT
  Age: 54 Year
  Sex: Female

DRUGS (2)
  1. VECTIBIX [Suspect]
     Indication: COLON CANCER
     Dosage: 230 MG, CYCLICAL
     Route: 042
     Dates: start: 20110315, end: 20110927
  2. NOVALDEX [Concomitant]
     Indication: INTRADUCTAL PROLIFERATIVE BREAST LESION
     Dosage: 20 MG, UNK FOR 2 YEARS
     Route: 048

REACTIONS (1)
  - Folliculitis [Recovered/Resolved]
